FAERS Safety Report 11923460 (Version 1)
Quarter: 2016Q1

REPORT INFORMATION
  Report Type: Spontaneous
  Country: US (occurrence: US)
  Receive Date: 20160118
  Receipt Date: 20160118
  Transmission Date: 20160526
  Serious: No
  Sender: FDA-Public Use
  Company Number: US-HOSPIRA-2680052

PATIENT
  Sex: Male

DRUGS (1)
  1. HYDROMORPHONE HYDROCHLORIDE. [Suspect]
     Active Substance: HYDROMORPHONE HYDROCHLORIDE
     Indication: PRODUCT USED FOR UNKNOWN INDICATION
     Dosage: NOT APPLICABLE, NOT APPLICABLE
     Route: 050

REACTIONS (4)
  - Injury associated with device [Unknown]
  - Syringe issue [Unknown]
  - Needle issue [Unknown]
  - Accident at work [Unknown]

NARRATIVE: CASE EVENT DATE: 201412
